FAERS Safety Report 4922471-4 (Version None)
Quarter: 2006Q1

REPORT INFORMATION
  Report Type: 
  Country: None (occurrence: None)
  Receive Date: 20060224
  Receipt Date: 20060130
  Transmission Date: 20060701
  Serious: Yes (Hospitalization)
  Sender: FDA-Public Use
  Company Number: GBWYE353801FEB06

PATIENT
  Sex: Female

DRUGS (6)
  1. ENBREL [Suspect]
     Indication: RHEUMATOID ARTHRITIS
     Route: 058
     Dates: start: 20050929
  2. ISONIAZID [Concomitant]
     Route: 065
  3. PYRIDOXINE HCL [Concomitant]
     Route: 065
  4. METHOTREXATE [Concomitant]
     Route: 065
  5. MELOXICAM [Concomitant]
     Route: 065
  6. FOLIC ACID [Concomitant]
     Route: 065

REACTIONS (3)
  - DEHYDRATION [None]
  - HEADACHE [None]
  - VOMITING [None]
